FAERS Safety Report 25409398 (Version 1)
Quarter: 2025Q2

REPORT INFORMATION
  Report Type: Spontaneous
  Country: CN (occurrence: CN)
  Receive Date: 20250607
  Receipt Date: 20250607
  Transmission Date: 20250716
  Serious: Yes (Death, Other)
  Sender: AMGEN
  Company Number: CN-AMGEN-CHNSP2025107215

PATIENT

DRUGS (2)
  1. CARFILZOMIB [Suspect]
     Active Substance: CARFILZOMIB
     Indication: Plasma cell myeloma refractory
     Route: 065
  2. BORTEZOMIB [Suspect]
     Active Substance: BORTEZOMIB
     Indication: Plasma cell myeloma refractory
     Route: 065

REACTIONS (15)
  - Death [Fatal]
  - Infection [Fatal]
  - COVID-19 [Fatal]
  - Cerebral haemorrhage [Fatal]
  - Hepatic failure [Fatal]
  - Plasma cell myeloma refractory [Fatal]
  - Immune effector cell-associated neurotoxicity syndrome [Unknown]
  - Cytokine release syndrome [Unknown]
  - Neutropenia [Unknown]
  - Thrombocytopenia [Unknown]
  - Anaemia [Unknown]
  - Tumour lysis syndrome [Unknown]
  - Coagulopathy [Unknown]
  - Hepatitis B reactivation [Unknown]
  - Acute myeloid leukaemia [Unknown]
